FAERS Safety Report 18943479 (Version 2)
Quarter: 2021Q2

REPORT INFORMATION
  Report Type: Spontaneous
  Country: FR (occurrence: FR)
  Receive Date: 20210226
  Receipt Date: 20210403
  Transmission Date: 20210717
  Serious: Yes (Hospitalization)
  Sender: FDA-Public Use
  Company Number: FR-TEVA-2021-FR-1883322

PATIENT
  Age: 77 Year
  Sex: Male
  Weight: 64 kg

DRUGS (8)
  1. ALLOPURINOL. [Suspect]
     Active Substance: ALLOPURINOL
     Indication: GOUT
     Dosage: 100MG
     Route: 048
  2. PROCORALAN 5 MG, COMPRIME PELLICULE [Suspect]
     Active Substance: IVABRADINE HYDROCHLORIDE
     Indication: CARDIOMYOPATHY
     Dosage: 5MG
     Route: 048
     Dates: start: 202011
  3. AMIODARONE BASE [Suspect]
     Active Substance: AMIODARONE
     Indication: CARDIOMYOPATHY
     Dosage: 200MG
     Route: 048
     Dates: start: 202011, end: 20210125
  4. RAMIPRIL. [Suspect]
     Active Substance: RAMIPRIL
     Indication: CARDIOMYOPATHY
     Dosage: 10MG
     Route: 048
     Dates: start: 202011, end: 20210125
  5. ALDACTONE [Suspect]
     Active Substance: SPIRONOLACTONE
     Indication: CARDIOMYOPATHY
     Dosage: 12.5MG, ALDACTONE 25 MG, COMPRIME PELLICULE SECABLE
     Route: 048
     Dates: start: 202011, end: 20210125
  6. ATORVASTATINE [Suspect]
     Active Substance: ATORVASTATIN
     Indication: CARDIOVASCULAR EVENT PROPHYLAXIS
     Dosage: 40MG
     Route: 048
  7. KARDEGIC [Suspect]
     Active Substance: ASPIRIN DL-LYSINE
     Indication: CARDIOVASCULAR EVENT PROPHYLAXIS
     Dosage: 1DF
     Route: 048
     Dates: start: 20201116
  8. FUROSEMIDE. [Suspect]
     Active Substance: FUROSEMIDE
     Indication: CARDIOMYOPATHY
     Dosage: 375MG
     Route: 048

REACTIONS (2)
  - Dermatitis exfoliative generalised [Recovering/Resolving]
  - Eosinophilia [Recovered/Resolved]

NARRATIVE: CASE EVENT DATE: 202012
